FAERS Safety Report 8764413 (Version 1)
Quarter: 2012Q4

REPORT INFORMATION
  Report Type: 
  Country: DK (occurrence: DK)
  Receive Date: 20120831
  Receipt Date: 20120831
  Transmission Date: 20130627
  Serious: Yes (Death)
  Sender: FDA-Public Use
  Company Number: PHHY2012DK075481

PATIENT
  Age: 26 Year
  Sex: Female

DRUGS (2)
  1. CICLOSPORIN [Suspect]
  2. PREDNISOLONE [Suspect]

REACTIONS (1)
  - Lung transplant rejection [Fatal]
